FAERS Safety Report 4876334-3 (Version None)
Quarter: 2005Q4

REPORT INFORMATION
  Report Type: 
  Country: None (occurrence: None)
  Receive Date: 20051206
  Receipt Date: 20050831
  Transmission Date: 20060501
  Serious: No
  Sender: FDA-Public Use
  Company Number: USA0508104876

PATIENT
  Age: 79 Year
  Sex: Female

DRUGS (5)
  1. CYMBALTA [Suspect]
     Indication: DEPRESSION
     Dosage: 30 MG DAY
     Dates: start: 20050711, end: 20050823
  2. DIOVAN [Concomitant]
  3. IBUPROFEN [Concomitant]
  4. VITAMINS [Concomitant]
  5. STOOL SOFTENER (DOCUSATE SODIUM) [Concomitant]

REACTIONS (8)
  - CHROMATURIA [None]
  - CONFUSIONAL STATE [None]
  - CONSTIPATION [None]
  - FATIGUE [None]
  - MUSCLE SPASMS [None]
  - SOMNOLENCE [None]
  - TINNITUS [None]
  - URINE ODOUR ABNORMAL [None]
